FAERS Safety Report 23178637 (Version 1)
Quarter: 2023Q4

REPORT INFORMATION
  Report Type: Spontaneous
  Country: US (occurrence: None)
  Receive Date: 20231112
  Receipt Date: 20231112
  Transmission Date: 20240110
  Serious: Yes (Other)
  Sender: FDA-Public Use
  Company Number: None

PATIENT
  Age: 31 Year
  Sex: Female
  Weight: 45.36 kg

DRUGS (2)
  1. PARAGARD T 380A [Suspect]
     Active Substance: COPPER
  2. Adderall 20 mg/day [Concomitant]

REACTIONS (10)
  - Mood swings [None]
  - Skin odour abnormal [None]
  - Heavy menstrual bleeding [None]
  - Premenstrual syndrome [None]
  - Asthenia [None]
  - Palpitations [None]
  - Muscle spasms [None]
  - Vaginal odour [None]
  - Fungal infection [None]
  - Bacterial vaginosis [None]

NARRATIVE: CASE EVENT DATE: 20231112
